FAERS Safety Report 25448828 (Version 1)
Quarter: 2025Q2

REPORT INFORMATION
  Report Type: Spontaneous
  Country: US (occurrence: US)
  Receive Date: 20250618
  Receipt Date: 20250618
  Transmission Date: 20250716
  Serious: No
  Sender: ROCHE
  Company Number: US-ROCHE-10000313638

PATIENT
  Sex: Male

DRUGS (2)
  1. XOLAIR PFS [Suspect]
     Active Substance: OMALIZUMAB
     Indication: Asthma
     Route: 065
  2. XOLAIR PFS [Suspect]
     Active Substance: OMALIZUMAB
     Dosage: UNDER THE SKIN.
     Route: 058
     Dates: start: 202202

REACTIONS (1)
  - Asthma [Unknown]
